FAERS Safety Report 8031516-7 (Version None)
Quarter: 2011Q4

REPORT INFORMATION
  Report Type: 
  Country: None (occurrence: None)
  Receive Date: 20111201
  Receipt Date: 20110225
  Transmission Date: 20120403
  Serious: Yes (Other)
  Sender: FDA-Public Use
  Company Number: 2011SP009125

PATIENT
  Age: 62 Year
  Sex: Male

DRUGS (5)
  1. HYDROCODONE BITARTRATE [Concomitant]
  2. BENICAR [Concomitant]
  3. NASONEX [Suspect]
     Indication: MULTIPLE ALLERGIES
     Dosage: 4 DF;QD;INH
     Route: 055
     Dates: end: 20110224
  4. CRESTOR [Concomitant]
  5. NORVASC [Concomitant]

REACTIONS (1)
  - GLAUCOMA [None]
